FAERS Safety Report 7544855-0 (Version None)
Quarter: 2011Q2

REPORT INFORMATION
  Report Type: 
  Country: None (occurrence: None)
  Receive Date: 20110614
  Receipt Date: 20091103
  Transmission Date: 20111010
  Serious: Yes (Death, Hospitalization, Other)
  Sender: FDA-Public Use
  Company Number: US-BAYER-200939810NA

PATIENT
  Age: 69 Year
  Sex: Male
  Weight: 86 kg

DRUGS (25)
  1. FUROSEMIDE [Concomitant]
     Dosage: 20 MG, QD
     Route: 048
  2. COZAAR [Concomitant]
     Dosage: 25 MG, QD
     Route: 048
  3. HEPARIN [Concomitant]
  4. TRASYLOL [Suspect]
     Indication: INTRA-AORTIC BALLOON PLACEMENT
  5. TRASYLOL [Suspect]
     Indication: CORONARY REVASCULARISATION
  6. LEVOTHROID [Concomitant]
     Dosage: 0.5 MG, QD
     Route: 048
  7. TRASYLOL [Suspect]
     Indication: CORONARY ARTERY BYPASS
     Dosage: 100 ML PUMP PRIME
     Route: 042
     Dates: start: 20010718, end: 20010718
  8. LIPITOR [Concomitant]
     Dosage: 20 MG, QD
     Route: 048
  9. PAXIL [Concomitant]
     Dosage: 40 MG, QD
     Route: 048
  10. HEPARIN [Concomitant]
     Dosage: 5000 U
     Route: 042
     Dates: start: 20010718
  11. PROPOFOL [Concomitant]
     Dosage: UNK
     Route: 042
     Dates: start: 20010718, end: 20010718
  12. NORVASC [Concomitant]
     Dosage: 10 MG, QD
     Route: 048
  13. PREVACID [Concomitant]
     Dosage: 30 MG, UNK
     Route: 048
  14. HEPARIN [Concomitant]
     Dosage: 10 ML
     Route: 042
     Dates: start: 20010718
  15. PROTAMINE SULFATE [Concomitant]
     Dosage: UNK
     Route: 042
     Dates: start: 20010718, end: 20010718
  16. DOPAMINE HCL [Concomitant]
     Dosage: UNK
     Route: 042
     Dates: start: 20010718
  17. ATENOLOL [Concomitant]
     Dosage: 25 MG, QD
     Route: 048
  18. LIDOCAINE [Concomitant]
     Dosage: 100 MG, UNK
     Route: 042
     Dates: start: 20010718
  19. RED BLOOD CELLS [Concomitant]
  20. TRASYLOL [Suspect]
     Indication: AORTIC VALVE REPLACEMENT
     Dosage: 25 ML/HR
     Route: 042
     Dates: start: 20010718, end: 20010718
  21. EPINEPHRINE [Concomitant]
     Dosage: UNK
     Route: 042
     Dates: start: 20010718
  22. FRESH FROZEN PLASMA [Concomitant]
  23. BACITRACIN [Concomitant]
     Dosage: 50000 U, UNK
     Route: 042
     Dates: start: 20010718, end: 20010718
  24. PRIMACOR [Concomitant]
     Dosage: UNK
     Route: 042
     Dates: start: 20010718
  25. DESMOPRESSIN [Concomitant]
     Dosage: UNK
     Route: 042
     Dates: start: 20010718

REACTIONS (12)
  - RENAL IMPAIRMENT [None]
  - DEATH [None]
  - UNEVALUABLE EVENT [None]
  - ANHEDONIA [None]
  - RENAL INJURY [None]
  - EMOTIONAL DISTRESS [None]
  - STRESS [None]
  - INJURY [None]
  - RENAL FAILURE [None]
  - ANXIETY [None]
  - FEAR [None]
  - PAIN [None]
